FAERS Safety Report 14096806 (Version 1)
Quarter: 2017Q4

REPORT INFORMATION
  Report Type: Report from Study
  Country: US (occurrence: US)
  Receive Date: 20171016
  Receipt Date: 20171016
  Transmission Date: 20180321
  Serious: Yes (Other)
  Sender: FDA-Public Use
  Company Number: US-GILEAD-2017-0297268

PATIENT
  Age: 60 Year
  Sex: Female

DRUGS (1)
  1. LEDIPASVIR/SOFOSBUVIR [Suspect]
     Active Substance: LEDIPASVIR\SOFOSBUVIR
     Indication: CHRONIC HEPATITIS C
     Dosage: 1 DF, QD
     Route: 048
     Dates: start: 20170824

REACTIONS (3)
  - Hepatitis C RNA increased [Not Recovered/Not Resolved]
  - Labelled drug-drug interaction medication error [Recovered/Resolved]
  - Product container issue [Recovered/Resolved]
